FAERS Safety Report 16217336 (Version 1)
Quarter: 2019Q2

REPORT INFORMATION
  Report Type: Spontaneous
  Country: US (occurrence: US)
  Receive Date: 20190419
  Receipt Date: 20190419
  Transmission Date: 20190711
  Serious: No
  Sender: FDA-Public Use
  Company Number: US-PFIZER INC-2019161515

PATIENT
  Sex: Female

DRUGS (1)
  1. IBRANCE [Suspect]
     Active Substance: PALBOCICLIB
     Indication: BREAST CANCER METASTATIC
     Dosage: UNK

REACTIONS (6)
  - Malaise [Unknown]
  - Fatigue [Not Recovered/Not Resolved]
  - Aphthous ulcer [Recovered/Resolved]
  - White blood cell count decreased [Recovered/Resolved]
  - Pain [Unknown]
  - Rash [Recovered/Resolved]
